FAERS Safety Report 4727458-2 (Version None)
Quarter: 2005Q3

REPORT INFORMATION
  Report Type: 
  Country: None (occurrence: None)
  Receive Date: 20050727
  Receipt Date: 20050727
  Transmission Date: 20060218
  Serious: Yes (Hospitalization)
  Sender: FDA-Public Use
  Company Number: None

PATIENT
  Age: 72 Year
  Sex: Male
  Weight: 109 kg

DRUGS (7)
  1. ETODOLAC [Suspect]
     Indication: SHOULDER PAIN
     Dosage: 300 MG PO DAILY [PAST 3-4 WKS]
     Route: 048
  2. IBUPROFEN [Suspect]
     Indication: SHOULDER PAIN
     Dosage: 200 MG PO QID [MONTHS]
     Route: 048
  3. NEURONTIN [Concomitant]
  4. FLOMAX [Concomitant]
  5. HYDROCODONE [Concomitant]
  6. GLYBURIDE [Concomitant]
  7. ASPIRIN [Concomitant]

REACTIONS (4)
  - ACUTE MYOCARDIAL INFARCTION [None]
  - ANAEMIA [None]
  - DUODENAL ULCER [None]
  - GASTRIC ULCER [None]
